FAERS Safety Report 9064380 (Version 3)
Quarter: 2013Q2

REPORT INFORMATION
  Report Type: Spontaneous
  Country: CA (occurrence: CA)
  Receive Date: 20130128
  Receipt Date: 20130419
  Transmission Date: 20140414
  Serious: Yes (Hospitalization, Other)
  Sender: FDA-Public Use
  Company Number: PHHY2013CA006974

PATIENT
  Age: 55 Year
  Sex: Female

DRUGS (4)
  1. AFINITOR [Suspect]
     Indication: BREAST CANCER METASTATIC
     Dosage: 10 MG, QD
     Route: 048
     Dates: start: 201208, end: 20130111
  2. AFINITOR [Suspect]
     Dosage: EVERY OTHER DAY
     Route: 048
  3. AROMASIN [Suspect]
     Indication: BREAST CANCER METASTATIC
     Dosage: 10 MG, QD
     Route: 048
     Dates: start: 201208, end: 20130111
  4. AROMASIN [Suspect]
     Dosage: UNK
     Dates: start: 201301

REACTIONS (5)
  - Radiation pneumonitis [Unknown]
  - Radiation skin injury [Unknown]
  - Musculoskeletal pain [Unknown]
  - Lung infiltration [Unknown]
  - Pneumonitis [Unknown]
